FAERS Safety Report 6311562-1 (Version None)
Quarter: 2009Q3

REPORT INFORMATION
  Report Type: 
  Country: None (occurrence: None)
  Receive Date: 20090817
  Receipt Date: 20090807
  Transmission Date: 20100115
  Serious: Yes (Other)
  Sender: FDA-Public Use
  Company Number: IE-ABBOTT-09P-229-0589808-00

PATIENT
  Age: 53 Year
  Sex: Female

DRUGS (2)
  1. KLARICID GRANULES FOR ORAL SUSPENSION [Suspect]
     Indication: LOWER RESPIRATORY TRACT INFECTION
     Dosage: 250MG/5ML
     Route: 048
     Dates: start: 20090710, end: 20090717
  2. ZESTORETIC [Concomitant]
     Indication: DRUG USE FOR UNKNOWN INDICATION
     Dosage: ZESTORETIC 10

REACTIONS (1)
  - MYALGIA [None]
